FAERS Safety Report 9091772 (Version 1)
Quarter: 2013Q1

REPORT INFORMATION
  Report Type: Report from Study
  Country: US (occurrence: US)
  Receive Date: 20130201
  Receipt Date: 20130201
  Transmission Date: 20140127
  Serious: No
  Sender: FDA-Public Use
  Company Number: US-ABBOTT-12P-163-1020552-00

PATIENT
  Age: 68 Year
  Sex: Female

DRUGS (12)
  1. HUMIRA [Suspect]
     Indication: CROHN^S DISEASE
  2. VIMOVO [Concomitant]
     Indication: OSTEOARTHRITIS
     Dosage: 500/20MG
  3. PENTASA [Concomitant]
     Indication: PRODUCT USED FOR UNKNOWN INDICATION
  4. ATELVIA [Concomitant]
     Indication: OSTEOPOROSIS
  5. AZILECT [Concomitant]
     Indication: PARKINSON^S DISEASE
  6. SINEMET [Concomitant]
     Indication: PARKINSON^S DISEASE
     Dosage: 25/250MG; PILL
  7. BIFERARX [Concomitant]
     Indication: ANAEMIA
     Dosage: EVERY DAY
  8. GLYBURIDE [Concomitant]
     Indication: GLUCOSE TOLERANCE IMPAIRED
  9. DIOVAN [Concomitant]
     Indication: BLOOD PRESSURE INCREASED
  10. VITAMIN D [Concomitant]
     Indication: VITAMIN D DEFICIENCY
  11. VITAMIN D [Concomitant]
     Indication: VITAMIN D DEFICIENCY
     Dosage: EVERY WEEK
  12. OTC VITAMINS [Concomitant]
     Indication: VITAMIN SUPPLEMENTATION
     Dosage: EVERY DAY

REACTIONS (5)
  - Dizziness [Not Recovered/Not Resolved]
  - Arthralgia [Not Recovered/Not Resolved]
  - Fall [Not Recovered/Not Resolved]
  - Asthenia [Not Recovered/Not Resolved]
  - Weight decreased [Not Recovered/Not Resolved]
